FAERS Safety Report 5973189-0 (Version None)
Quarter: 2008Q4

REPORT INFORMATION
  Report Type: 
  Country: None (occurrence: None)
  Receive Date: 20081201
  Receipt Date: 20081119
  Transmission Date: 20090506
  Serious: Yes (Death, Hospitalization)
  Sender: FDA-Public Use
  Company Number: JP-ELI_LILLY_AND_COMPANY-JP200805005004

PATIENT
  Sex: Male
  Weight: 62.8 kg

DRUGS (6)
  1. GEMZAR [Suspect]
     Indication: BILE DUCT CANCER
     Dosage: 1600 MG, OTHER
     Route: 042
     Dates: start: 20080306, end: 20080306
  2. GEMZAR [Suspect]
     Dosage: 1200 MG, OTHER
     Route: 042
     Dates: start: 20080313, end: 20080313
  3. LOXONIN [Concomitant]
     Indication: PAIN
     Dosage: 1 D/F, DAILY (1/D)
     Route: 048
     Dates: start: 20080306
  4. SELBEX [Concomitant]
     Indication: PAIN
     Dosage: 1 D/F, DAILY (1/D)
     Route: 048
     Dates: start: 20080306
  5. NOVAMIN [Concomitant]
     Indication: PROPHYLAXIS
     Dosage: 1 D/F, 3/D
     Route: 048
     Dates: start: 20080306
  6. OXYCONTIN [Concomitant]
     Indication: PAIN
     Dosage: 1 D/F, 2/D
     Route: 048
     Dates: start: 20080306

REACTIONS (5)
  - ANOREXIA [None]
  - DEEP VEIN THROMBOSIS [None]
  - DEHYDRATION [None]
  - MALIGNANT NEOPLASM PROGRESSION [None]
  - PYREXIA [None]
